FAERS Safety Report 7527389-9 (Version None)
Quarter: 2011Q2

REPORT INFORMATION
  Report Type: 
  Country: None (occurrence: None)
  Receive Date: 20110603
  Receipt Date: 20110526
  Transmission Date: 20111010
  Serious: Yes (Other)
  Sender: FDA-Public Use
  Company Number: JPI-P-015269

PATIENT
  Age: 43 Year
  Sex: Female

DRUGS (1)
  1. XYREM [Suspect]
     Indication: CATAPLEXY
     Dosage: 9 GM (4.5 GM,2 IN 1 D), ORAL
     Route: 048
     Dates: start: 20080609

REACTIONS (9)
  - THERAPEUTIC RESPONSE DECREASED [None]
  - FIBULA FRACTURE [None]
  - FALL [None]
  - PALPITATIONS [None]
  - THIRST [None]
  - COLD SWEAT [None]
  - ASTHMA [None]
  - TIBIA FRACTURE [None]
  - INTENTIONAL DRUG MISUSE [None]
